FAERS Safety Report 6451049-9 (Version None)
Quarter: 2009Q4

REPORT INFORMATION
  Report Type: 
  Country: None (occurrence: None)
  Receive Date: 20091123
  Receipt Date: 20091117
  Transmission Date: 20100525
  Serious: Yes (Other)
  Sender: FDA-Public Use
  Company Number: GXKR2007GB01202

PATIENT
  Age: 79 Year
  Sex: Male
  Weight: 76.2 kg

DRUGS (14)
  1. MIRTAZAPINE [Suspect]
     Indication: DEPRESSION
     Dosage: 30 MG, QD
     Route: 048
     Dates: start: 20061121, end: 20070103
  2. ATORVASTATIN [Concomitant]
     Indication: HYPERCHOLESTEROLAEMIA
     Dosage: 10 MG, QD
     Route: 048
     Dates: start: 20070206
  3. FLECAINIDE ACETATE [Concomitant]
     Indication: ATRIAL FLUTTER
     Dosage: 100 MG, QD
     Route: 048
     Dates: start: 20040101
  4. OMEPRAZOLE [Concomitant]
     Indication: GASTROOESOPHAGEAL REFLUX DISEASE
     Dosage: 20 MG, QD
     Route: 048
     Dates: start: 20070206
  5. SOTALOL HCL [Concomitant]
     Indication: ATRIAL FLUTTER
     Dosage: 40 MG, BID
     Route: 048
     Dates: start: 20060901
  6. VERAPAMIL [Concomitant]
     Indication: ATRIAL FLUTTER
     Dosage: 120 MG, QD
     Route: 048
     Dates: start: 20061101
  7. WARFARIN SODIUM [Concomitant]
     Indication: ATRIAL FLUTTER
     Dosage: 1 MG, UNK
     Route: 048
     Dates: start: 20070105
  8. WARFARIN SODIUM [Concomitant]
     Dosage: 3 MG, UNK
     Route: 048
  9. WARFARIN SODIUM [Concomitant]
     Dosage: 5 MG, UNK
     Route: 048
  10. ALENDRONIC ACID [Concomitant]
     Dosage: 70 MG, BID
     Dates: start: 20061009
  11. HYDROXYCHLOROQUINE SULFATE [Concomitant]
     Dosage: 200 MG, BID
     Dates: start: 20070105
  12. PARAFFIN, LIQUID [Concomitant]
     Dosage: 500 G, UNK
     Dates: start: 20070110
  13. PREDNISOLONE [Concomitant]
     Dosage: UNK
     Dates: start: 20070206
  14. SOTALOL HCL [Concomitant]
     Dosage: UNK
     Dates: start: 20061009

REACTIONS (3)
  - GENERALISED ERYTHEMA [None]
  - OEDEMA [None]
  - SKIN EXFOLIATION [None]
